FAERS Safety Report 4998340-0 (Version None)
Quarter: 2006Q2

REPORT INFORMATION
  Report Type: 
  Country: None (occurrence: None)
  Receive Date: 20060508
  Receipt Date: 20060425
  Transmission Date: 20061013
  Serious: Yes (Hospitalization, Other)
  Sender: FDA-Public Use
  Company Number: 2006056144

PATIENT
  Age: 57 Year
  Sex: Male
  Weight: 60 kg

DRUGS (5)
  1. SUTENT [Suspect]
     Indication: GASTROINTESTINAL STROMAL TUMOUR
     Dosage: 50 MG (50 MG, 1 IN 1 D), ORAL
     Route: 048
     Dates: start: 20060330
  2. DURAGESIC-100 [Concomitant]
  3. LISINOPRIL [Concomitant]
  4. ARANESP [Concomitant]
  5. LASILACTON                 (FUROSEMIDE, SPIRONOLACTONE) [Concomitant]

REACTIONS (3)
  - GRAND MAL CONVULSION [None]
  - HYPERTENSION [None]
  - HYPOGLYCAEMIA [None]
